FAERS Safety Report 17804547 (Version 3)
Quarter: 2021Q1

REPORT INFORMATION
  Report Type: Report from Study
  Country: US (occurrence: US)
  Receive Date: 20200519
  Receipt Date: 20210303
  Transmission Date: 20210419
  Serious: Yes (Other)
  Sender: FDA-Public Use
  Company Number: US-BAUSCH-BL-2020-001552

PATIENT
  Age: 20 Year
  Sex: Male

DRUGS (1)
  1. CUPRIMINE [Suspect]
     Active Substance: PENICILLAMINE
     Indication: PRODUCT USED FOR UNKNOWN INDICATION
     Route: 048

REACTIONS (10)
  - Angiopathy [Unknown]
  - Liver disorder [Unknown]
  - Ocular icterus [Unknown]
  - Ill-defined disorder [Unknown]
  - Treatment noncompliance [Unknown]
  - Gastric disorder [Unknown]
  - Illness [Unknown]
  - Blood pressure increased [Unknown]
  - Product dose omission issue [Unknown]
  - Hepatic cirrhosis [Unknown]

NARRATIVE: CASE EVENT DATE: 202001
